FAERS Safety Report 10070001 (Version 2)
Quarter: 2014Q2

REPORT INFORMATION
  Report Type: Spontaneous
  Country: US (occurrence: US)
  Receive Date: 20140410
  Receipt Date: 20140422
  Transmission Date: 20141212
  Serious: Yes (Life-Threatening, Hospitalization, Disabling)
  Sender: FDA-Public Use
  Company Number: US-JNJFOC-20140406416

PATIENT
  Age: 88 Year
  Sex: Female
  Weight: 66.23 kg

DRUGS (15)
  1. XARELTO [Suspect]
     Indication: CEREBROVASCULAR ACCIDENT PROPHYLAXIS
     Route: 048
     Dates: start: 20130815, end: 20131203
  2. XARELTO [Suspect]
     Indication: ATRIAL FIBRILLATION
     Route: 048
     Dates: start: 20130815, end: 20131203
  3. COLCHICINE [Concomitant]
     Indication: GOUT
     Route: 048
  4. CYANOCOBALAMIN [Concomitant]
     Indication: NUTRITIONAL SUPPLEMENTATION
     Route: 048
  5. GABAPENTIN [Concomitant]
     Indication: NEUROPATHY PERIPHERAL
     Route: 048
  6. LORATADINE [Concomitant]
     Indication: MULTIPLE ALLERGIES
     Route: 048
  7. LORAZEPAM [Concomitant]
     Indication: ANXIETY
     Route: 048
  8. OLANZAPINE [Concomitant]
     Indication: ABNORMAL BEHAVIOUR
     Route: 048
     Dates: start: 20131203
  9. OLANZAPINE [Concomitant]
     Indication: DEMENTIA
     Route: 048
     Dates: start: 20131203
  10. POLYETHYLENE GLYCOL [Concomitant]
     Route: 048
  11. KLOR-CON [Concomitant]
     Indication: NUTRITIONAL SUPPLEMENTATION
     Route: 048
  12. SERTRALINE [Concomitant]
     Indication: DEPRESSION
     Route: 048
  13. FUROSEMIDE [Concomitant]
     Indication: CARDIAC FAILURE
     Route: 065
  14. DIGOXIN [Concomitant]
     Indication: CARDIAC FAILURE
     Route: 065
  15. ACETAMINOPHEN [Concomitant]
     Indication: PAIN
     Dosage: AS NECESSARY
     Route: 048
     Dates: start: 20131203

REACTIONS (1)
  - Ischaemic stroke [Recovered/Resolved with Sequelae]
